FAERS Safety Report 4949879-5 (Version None)
Quarter: 2006Q1

REPORT INFORMATION
  Report Type: 
  Country: None (occurrence: None)
  Receive Date: 20060315
  Receipt Date: 20060301
  Transmission Date: 20060701
  Serious: Yes (Death)
  Sender: FDA-Public Use
  Company Number: S06-SWI-01204-01

PATIENT
  Age: 74 Year
  Sex: Male

DRUGS (1)
  1. CITALOPRAM HYDROBROMIDE [Suspect]
     Dosage: 20 MG QD; PO
     Route: 048
     Dates: start: 20040101, end: 20050101

REACTIONS (4)
  - ACCIDENT [None]
  - CONDITION AGGRAVATED [None]
  - HYPOMANIA [None]
  - PRESCRIBED OVERDOSE [None]
